FAERS Safety Report 24556988 (Version 6)
Quarter: 2025Q1

REPORT INFORMATION
  Report Type: Report from Study
  Country: CA (occurrence: CA)
  Receive Date: 20241028
  Receipt Date: 20250327
  Transmission Date: 20250409
  Serious: Yes (Other)
  Sender: OTSUKA
  Company Number: CA-OTSUKA-2024_028771

PATIENT
  Sex: Female

DRUGS (11)
  1. ARIPIPRAZOLE [Suspect]
     Active Substance: ARIPIPRAZOLE
     Indication: Product used for unknown indication
     Route: 030
  2. LISDEXAMFETAMINE DIMESYLATE [Concomitant]
     Active Substance: LISDEXAMFETAMINE DIMESYLATE
     Indication: Product used for unknown indication
     Dosage: 60 MG, QD
     Route: 065
  3. LISDEXAMFETAMINE DIMESYLATE [Concomitant]
     Active Substance: LISDEXAMFETAMINE DIMESYLATE
     Route: 065
  4. DULOXETINE [Concomitant]
     Active Substance: DULOXETINE
     Indication: Product used for unknown indication
     Dosage: (60MG+30MG) QD
     Route: 065
  5. MIRTAZAPINE [Concomitant]
     Active Substance: MIRTAZAPINE
     Indication: Product used for unknown indication
     Dosage: 30 MG, QD (AT NIGHT)
     Route: 065
  6. BENZTROPINE [Concomitant]
     Active Substance: BENZTROPINE
     Indication: Product used for unknown indication
     Dosage: 1 MG, BID
     Route: 065
  7. BENZTROPINE [Concomitant]
     Active Substance: BENZTROPINE
     Route: 065
  8. PALIPERIDONE [Concomitant]
     Active Substance: PALIPERIDONE
     Indication: Product used for unknown indication
     Dosage: 6 MG, QD (AT NIGHT)
     Route: 065
  9. MELATONIN [Concomitant]
     Active Substance: MELATONIN
     Indication: Product used for unknown indication
     Dosage: (3MG X2 (6MG)) (AT NIGHT), QD
     Route: 065
  10. SENOKOT [Concomitant]
     Active Substance: SENNOSIDES
     Indication: Product used for unknown indication
     Route: 065
  11. AMLODIPINE [Concomitant]
     Active Substance: AMLODIPINE BESYLATE
     Indication: Blood pressure measurement
     Dosage: 5 MG, QD
     Route: 065
     Dates: start: 20250108

REACTIONS (19)
  - Hallucination, auditory [Not Recovered/Not Resolved]
  - Stress [Unknown]
  - Illness [Recovering/Resolving]
  - Tearfulness [Unknown]
  - Influenza [Unknown]
  - Discomfort [Not Recovered/Not Resolved]
  - Acarodermatitis [Unknown]
  - Heart rate irregular [Recovering/Resolving]
  - Paranoia [Not Recovered/Not Resolved]
  - Delusion [Not Recovered/Not Resolved]
  - Psychotic disorder [Not Recovered/Not Resolved]
  - Heart rate increased [Not Recovered/Not Resolved]
  - Dizziness [Recovering/Resolving]
  - Fatigue [Recovering/Resolving]
  - Vomiting [Recovering/Resolving]
  - Diarrhoea [Recovering/Resolving]
  - Inappropriate schedule of product administration [Unknown]
  - Product dose omission in error [Unknown]
  - Inappropriate schedule of product administration [Recovered/Resolved]
